FAERS Safety Report 17715558 (Version 2)
Quarter: 2020Q2

REPORT INFORMATION
  Report Type: Spontaneous
  Country: US (occurrence: US)
  Receive Date: 20200427
  Receipt Date: 20200512
  Transmission Date: 20200714
  Serious: No
  Sender: FDA-Public Use
  Company Number: US-CELGENEUS-USA-20200407473

PATIENT
  Age: 47 Year
  Sex: Female

DRUGS (2)
  1. OTEZLA [Suspect]
     Active Substance: APREMILAST
     Indication: PSORIASIS
     Dosage: 60 MILLIGRAM
     Route: 048
     Dates: start: 202004
  2. OTEZLA [Suspect]
     Active Substance: APREMILAST
     Indication: PSORIATIC ARTHROPATHY
     Dosage: 30 MILLIGRAM
     Route: 048
     Dates: start: 202003

REACTIONS (7)
  - Vomiting [Unknown]
  - Nasal congestion [Unknown]
  - Insomnia [Recovering/Resolving]
  - Throat irritation [Unknown]
  - Headache [Unknown]
  - Diarrhoea [Unknown]
  - Nipple pain [Unknown]

NARRATIVE: CASE EVENT DATE: 202004
